FAERS Safety Report 9229463 (Version 1)
Quarter: 2013Q2

REPORT INFORMATION
  Report Type: Report from Study
  Country: GB (occurrence: GB)
  Receive Date: 20130412
  Receipt Date: 20130412
  Transmission Date: 20140414
  Serious: Yes (Hospitalization)
  Sender: FDA-Public Use
  Company Number: GB-AMGEN-GBRCT2013024593

PATIENT
  Age: 50 Year
  Sex: Male
  Weight: 91 kg

DRUGS (6)
  1. ETANERCEPT [Suspect]
     Indication: PRODUCT USED FOR UNKNOWN INDICATION
     Dosage: 50 MG, QWK
     Dates: start: 20121016
  2. METHOTREXATE [Concomitant]
     Dosage: UNK
     Dates: start: 19980715
  3. VALPROATE SODIUM [Concomitant]
     Dosage: UNK
     Dates: start: 19940701
  4. LANSOPRAZOLE [Concomitant]
     Dosage: UNK
     Dates: start: 19960701
  5. FOLIC ACID [Concomitant]
     Dosage: UNK
     Dates: start: 19980715
  6. NAPROXEN [Concomitant]
     Dosage: UNK
     Dates: start: 19900701

REACTIONS (1)
  - Cellulitis [Unknown]
